FAERS Safety Report 22018032 (Version 1)
Quarter: 2023Q1

REPORT INFORMATION
  Report Type: Spontaneous
  Country: DE (occurrence: DE)
  Receive Date: 20230221
  Receipt Date: 20230221
  Transmission Date: 20230418
  Serious: Yes (Other)
  Sender: FDA-Public Use
  Company Number: None

PATIENT
  Age: 38 Year
  Sex: Male
  Weight: 100 kg

DRUGS (1)
  1. DOTAREM [Suspect]
     Active Substance: GADOTERATE MEGLUMINE
     Indication: Magnetic resonance imaging
     Route: 042
     Dates: start: 20180911, end: 20180911

REACTIONS (23)
  - Hypertension [Recovering/Resolving]
  - Seizure [Recovered/Resolved with Sequelae]
  - Pain [Recovered/Resolved]
  - Neuralgia [Recovered/Resolved with Sequelae]
  - Disturbance in attention [Recovered/Resolved with Sequelae]
  - Panic attack [Recovered/Resolved with Sequelae]
  - Mental disorder [Recovered/Resolved]
  - Sleep disorder [Recovered/Resolved with Sequelae]
  - Insomnia [Recovered/Resolved]
  - Heart rate increased [Recovering/Resolving]
  - Palpitations [Recovering/Resolving]
  - Pruritus [Recovering/Resolving]
  - Rash macular [Recovering/Resolving]
  - Loss of control of legs [Recovered/Resolved]
  - Depersonalisation/derealisation disorder [Recovered/Resolved]
  - Headache [Recovering/Resolving]
  - Decreased appetite [Recovered/Resolved]
  - Photopsia [Recovering/Resolving]
  - Restlessness [Recovering/Resolving]
  - Visual impairment [Recovering/Resolving]
  - Tinnitus [Recovering/Resolving]
  - Product residue present [Recovering/Resolving]
  - Toxicity to various agents [Recovering/Resolving]

NARRATIVE: CASE EVENT DATE: 20180916
